FAERS Safety Report 5560510-0 (Version None)
Quarter: 2007Q4

REPORT INFORMATION
  Report Type: 
  Country: None (occurrence: None)
  Receive Date: 20071215
  Receipt Date: 20071114
  Transmission Date: 20080405
  Serious: Yes (Hospitalization)
  Sender: FDA-Public Use
  Company Number: US-ABBOTT-07P-163-0424841-00

PATIENT
  Sex: Female

DRUGS (3)
  1. HUMIRA [Suspect]
     Indication: CROHN'S DISEASE
     Dosage: STARTER DOSE
     Route: 058
     Dates: start: 20071001, end: 20071001
  2. HUMIRA [Suspect]
     Dosage: 80 MG, ONE DOSE
     Route: 058
     Dates: start: 20071001, end: 20071001
  3. HUMIRA [Suspect]
     Dosage: 40 MG EVERY TWO WEEKS
     Route: 058

REACTIONS (1)
  - HEADACHE [None]
